FAERS Safety Report 5304410-X (Version None)
Quarter: 2007Q2

REPORT INFORMATION
  Report Type: 
  Country: None (occurrence: None)
  Receive Date: 20070423
  Receipt Date: 20070412
  Transmission Date: 20071010
  Serious: Yes (Other)
  Sender: FDA-Public Use
  Company Number: US-ROCHE-451302

PATIENT
  Age: 51 Year
  Sex: Male
  Weight: 127.9 kg

DRUGS (8)
  1. FUZEON [Suspect]
     Dosage: ROUTE REPORTED AS INJECTABLE. THE PATIENT MISSED ONE DOSE ON 12 APRIL 2007.
     Route: 050
  2. TRUVADA [Concomitant]
     Route: 048
  3. KALETRA [Concomitant]
     Route: 048
  4. LEXIVA [Concomitant]
     Route: 048
  5. REMERON [Concomitant]
     Indication: DEPRESSION
  6. WELLBUTRIN [Concomitant]
     Indication: DEPRESSION
  7. CARBIDOPA AND LEVODOPA [Concomitant]
  8. AMPHETAMINE SULFATE [Concomitant]

REACTIONS (5)
  - ABSCESS [None]
  - DEMENTIA [None]
  - DRUG ADMINISTRATION ERROR [None]
  - INJECTION SITE REACTION [None]
  - NO ADVERSE EFFECT [None]
